FAERS Safety Report 5995256-8 (Version None)
Quarter: 2008Q4

REPORT INFORMATION
  Report Type: 
  Country: None (occurrence: None)
  Receive Date: 20081212
  Receipt Date: 20080919
  Transmission Date: 20090506
  Serious: No
  Sender: FDA-Public Use
  Company Number: US-ABBOTT-08P-163-0477670-00

PATIENT
  Sex: Female
  Weight: 72.64 kg

DRUGS (6)
  1. HUMIRA [Suspect]
     Indication: RHEUMATOID ARTHRITIS
     Route: 058
     Dates: end: 20080101
  2. METHOTREXATE [Concomitant]
     Indication: RHEUMATOID ARTHRITIS
     Route: 048
     Dates: start: 19950101
  3. VENLAFAXINE HYDROCHLORIDE [Concomitant]
     Indication: ANXIETY
     Route: 048
     Dates: start: 20040101
  4. PIROXICAM [Concomitant]
     Indication: ANTIINFLAMMATORY THERAPY
     Route: 048
     Dates: start: 19950101
  5. CLONIPINE [Concomitant]
     Indication: ANXIETY
     Route: 048
     Dates: start: 20060101
  6. DIOVAN HCT [Concomitant]
     Indication: BLOOD PRESSURE
     Dosage: 80/1.5 MG DAILY
     Route: 048
     Dates: start: 20040101

REACTIONS (3)
  - FATIGUE [None]
  - JOINT SWELLING [None]
  - PAIN [None]
